APPROVED DRUG PRODUCT: A-METHAPRED
Active Ingredient: METHYLPREDNISOLONE SODIUM SUCCINATE
Strength: EQ 40MG BASE/VIAL
Dosage Form/Route: INJECTABLE;INJECTION
Application: A040664 | Product #001
Applicant: HOSPIRA INC
Approved: Dec 20, 2005 | RLD: No | RS: No | Type: DISCN